FAERS Safety Report 4907593-6 (Version None)
Quarter: 2006Q1

REPORT INFORMATION
  Report Type: 
  Country: None (occurrence: None)
  Receive Date: 20060208
  Receipt Date: 20060206
  Transmission Date: 20060701
  Serious: Yes (Other)
  Sender: FDA-Public Use
  Company Number: HQWYE303311JAN06

PATIENT
  Age: 56 Year
  Sex: Male

DRUGS (3)
  1. OROKEN                     (CEFIXIME) [Suspect]
     Indication: INFECTION
     Dosage: 600 MG DAILY ORAL; 200 MG DAILY ORAL
     Route: 048
     Dates: start: 20051219, end: 20051219
  2. OROKEN                     (CEFIXIME) [Suspect]
     Indication: INFECTION
     Dosage: 600 MG DAILY ORAL; 200 MG DAILY ORAL
     Route: 048
     Dates: start: 20051220, end: 20051220
  3. GENTAMICIN SULFATE [Concomitant]

REACTIONS (3)
  - ANGIONEUROTIC OEDEMA [None]
  - CELLULITIS [None]
  - SUPERINFECTION [None]
